FAERS Safety Report 9334387 (Version 1)
Quarter: 2013Q2

REPORT INFORMATION
  Report Type: Spontaneous
  Country: US (occurrence: US)
  Receive Date: 20130606
  Receipt Date: 20130606
  Transmission Date: 20140414
  Serious: No
  Sender: FDA-Public Use
  Company Number: US-AMGEN-USASP2013000696

PATIENT
  Age: 77 Year
  Sex: Male

DRUGS (2)
  1. XGEVA [Suspect]
     Indication: PROSTATE CANCER METASTATIC
     Dosage: UNK
  2. XGEVA [Suspect]

REACTIONS (2)
  - Paraesthesia [Recovered/Resolved]
  - Arthralgia [Recovered/Resolved]
